FAERS Safety Report 21478452 (Version 2)
Quarter: 2022Q4

REPORT INFORMATION
  Report Type: Report from Study
  Country: US (occurrence: US)
  Receive Date: 20221019
  Receipt Date: 20221028
  Transmission Date: 20230112
  Serious: Yes (Hospitalization)
  Sender: FDA-Public Use
  Company Number: US-BoehringerIngelheim-2021-BI-143968

PATIENT
  Age: 81 Year
  Sex: Female
  Weight: 102.5 kg

DRUGS (2)
  1. OFEV [Suspect]
     Active Substance: NINTEDANIB
     Indication: Idiopathic pulmonary fibrosis
     Route: 048
     Dates: start: 20211028, end: 20211215
  2. OFEV [Suspect]
     Active Substance: NINTEDANIB
     Indication: Interstitial lung disease
     Route: 048
     Dates: start: 20220201

REACTIONS (12)
  - Fall [Recovering/Resolving]
  - Loss of consciousness [Unknown]
  - Wheezing [Not Recovered/Not Resolved]
  - Liver injury [Unknown]
  - Liver disorder [Recovered/Resolved]
  - Liver function test abnormal [Recovered/Resolved]
  - Hepatic enzyme increased [Unknown]
  - Diarrhoea [Unknown]
  - Cystitis [Unknown]
  - Liver function test abnormal [Unknown]
  - Eye injury [Unknown]
  - Face injury [Unknown]

NARRATIVE: CASE EVENT DATE: 20220101
